FAERS Safety Report 21715518 (Version 1)
Quarter: 2022Q4

REPORT INFORMATION
  Report Type: Spontaneous
  Country: US (occurrence: US)
  Receive Date: 20221212
  Receipt Date: 20221212
  Transmission Date: 20230113
  Serious: No
  Sender: FDA-Public Use
  Company Number: US-ALLERGAN-2228715US

PATIENT
  Sex: Male
  Weight: 108.86 kg

DRUGS (2)
  1. BYSTOLIC [Suspect]
     Active Substance: NEBIVOLOL HYDROCHLORIDE
     Indication: Wolff-Parkinson-White syndrome
     Dosage: 5 MG, BID
     Route: 048
     Dates: start: 2021
  2. BYSTOLIC [Suspect]
     Active Substance: NEBIVOLOL HYDROCHLORIDE
     Indication: Tachycardia

REACTIONS (3)
  - Pain in extremity [Recovered/Resolved]
  - Off label use [Unknown]
  - Chest pain [Recovered/Resolved]

NARRATIVE: CASE EVENT DATE: 20210101
